FAERS Safety Report 19086831 (Version 1)
Quarter: 2021Q2

REPORT INFORMATION
  Report Type: Report from Study
  Country: EG (occurrence: EG)
  Receive Date: 20210402
  Receipt Date: 20210402
  Transmission Date: 20210717
  Serious: Yes (Other)
  Sender: FDA-Public Use
  Company Number: NVSC2021EG058345

PATIENT
  Age: 28 Year
  Sex: Female

DRUGS (6)
  1. VITAMIN D [Concomitant]
     Active Substance: VITAMIN D NOS
     Indication: PRODUCT USED FOR UNKNOWN INDICATION
     Dosage: 10000 IU, QD
     Route: 065
     Dates: start: 20201120, end: 20201220
  2. PRAVOTIN [Concomitant]
     Indication: PRODUCT USED FOR UNKNOWN INDICATION
     Dosage: UNK, QD (1? 2 SACHETS)
     Route: 065
     Dates: start: 20201120, end: 20201220
  3. GILENYA [Suspect]
     Active Substance: FINGOLIMOD HYDROCHLORIDE
     Dosage: UNK
     Route: 048
     Dates: start: 202001
  4. YOUPLUS VITAMIN C [Concomitant]
     Active Substance: ASCORBIC ACID
     Indication: PRODUCT USED FOR UNKNOWN INDICATION
     Dosage: 1 G, QD
     Route: 065
     Dates: start: 20201120, end: 20201220
  5. GILENYA [Suspect]
     Active Substance: FINGOLIMOD HYDROCHLORIDE
     Indication: MULTIPLE SCLEROSIS
     Dosage: 0.5 MG, QD
     Route: 048
     Dates: start: 2015, end: 2017
  6. VITAMIN D [Concomitant]
     Active Substance: VITAMIN D NOS
     Dosage: (10000) 1 DF, QD
     Route: 065
     Dates: end: 202101

REACTIONS (11)
  - Rhinorrhoea [Recovered/Resolved]
  - Fatigue [Recovered/Resolved]
  - Diarrhoea [Recovered/Resolved]
  - Arthralgia [Recovered/Resolved]
  - Cough [Recovered/Resolved]
  - Ear pain [Recovered/Resolved]
  - Vitamin D deficiency [Unknown]
  - Leukopenia [Recovered/Resolved]
  - Pulmonary pain [Recovered/Resolved]
  - Lymphopenia [Not Recovered/Not Resolved]
  - COVID-19 [Recovered/Resolved]

NARRATIVE: CASE EVENT DATE: 2015
